FAERS Safety Report 26013342 (Version 1)
Quarter: 2025Q4

REPORT INFORMATION
  Report Type: Spontaneous
  Country: US (occurrence: US)
  Receive Date: 20251107
  Receipt Date: 20251107
  Transmission Date: 20260118
  Serious: No
  Sender: JAZZ
  Company Number: US-JAZZ PHARMACEUTICALS-2024-US-024225

PATIENT
  Age: 13 Year
  Sex: Male
  Weight: 38 kg

DRUGS (1)
  1. RYLAZE [Suspect]
     Active Substance: ASPARAGINASE ERWINIA CHRYSANTHEMI (RECOMBINANT)-RYWN
     Indication: B-cell type acute leukaemia
     Dosage: 50 MILLIGRAM/SQ. METER, FRQUENCY: MONDAY, WEDNESDAY, FRIDAY (25/25/50)
     Dates: start: 20241011, end: 20241111

REACTIONS (4)
  - Injection site rash [Recovered/Resolved]
  - Hyperhidrosis [Recovering/Resolving]
  - Pallor [Recovering/Resolving]
  - Urticaria [Recovered/Resolved]

NARRATIVE: CASE EVENT DATE: 20241011
